FAERS Safety Report 20862354 (Version 1)
Quarter: 2022Q2

REPORT INFORMATION
  Report Type: Spontaneous
  Country: US (occurrence: None)
  Receive Date: 20220523
  Receipt Date: 20220523
  Transmission Date: 20220720
  Serious: Yes (Hospitalization)
  Sender: FDA-Public Use
  Company Number: None

PATIENT
  Age: 77 Year
  Sex: Male

DRUGS (1)
  1. IODIXANOL [Suspect]
     Active Substance: IODIXANOL
     Indication: Angiogram
     Dates: start: 20220411, end: 20220411

REACTIONS (2)
  - Anaphylactic shock [None]
  - Unresponsive to stimuli [None]

NARRATIVE: CASE EVENT DATE: 20220411
